FAERS Safety Report 15229543 (Version 3)
Quarter: 2019Q4

REPORT INFORMATION
  Report Type: Spontaneous
  Country: US (occurrence: US)
  Receive Date: 20180802
  Receipt Date: 20191223
  Transmission Date: 20200122
  Serious: Yes (Death, Hospitalization)
  Sender: FDA-Public Use
  Company Number: US-JNJFOC-20180725867

PATIENT
  Age: 84 Year
  Sex: Female
  Weight: 71.67 kg

DRUGS (2)
  1. XARELTO [Suspect]
     Active Substance: RIVAROXABAN
     Route: 048
     Dates: start: 20150903, end: 20151005
  2. XARELTO [Suspect]
     Active Substance: RIVAROXABAN
     Indication: DEEP VEIN THROMBOSIS
     Route: 048
     Dates: start: 20150812, end: 20150902

REACTIONS (4)
  - Contusion [Recovering/Resolving]
  - Haemorrhagic stroke [Recovering/Resolving]
  - Fall [Unknown]
  - Ecchymosis [Recovering/Resolving]

NARRATIVE: CASE EVENT DATE: 20151005
